FAERS Safety Report 13034726 (Version 1)
Quarter: 2016Q4

REPORT INFORMATION
  Report Type: Spontaneous
  Country: US (occurrence: US)
  Receive Date: 20161216
  Receipt Date: 20161216
  Transmission Date: 20170207
  Serious: No
  Sender: FDA-Public Use
  Company Number: US-GLAXOSMITHKLINE-US2016GSK186341

PATIENT
  Age: 57 Year
  Sex: Male

DRUGS (2)
  1. TANZEUM [Suspect]
     Active Substance: ALBIGLUTIDE
     Dosage: 50 MG, WE
     Route: 042
     Dates: start: 201612
  2. TANZEUM [Suspect]
     Active Substance: ALBIGLUTIDE
     Indication: TYPE 2 DIABETES MELLITUS
     Dosage: 30 MG, WE
     Route: 042
     Dates: start: 2016, end: 201611

REACTIONS (9)
  - Drug dose omission [Unknown]
  - Product preparation error [Unknown]
  - Device use error [Unknown]
  - Accidental exposure to product [Unknown]
  - Drug ineffective [Unknown]
  - Diarrhoea [Unknown]
  - Drug intolerance [Unknown]
  - Nausea [Unknown]
  - Vomiting [Unknown]

NARRATIVE: CASE EVENT DATE: 2016
